FAERS Safety Report 7813203-0 (Version None)
Quarter: 2011Q4

REPORT INFORMATION
  Report Type: 
  Country: None (occurrence: None)
  Receive Date: 20111013
  Receipt Date: 20111007
  Transmission Date: 20120403
  Serious: Yes (Hospitalization)
  Sender: FDA-Public Use
  Company Number: GE-ABBOTT-11P-225-0862226-00

PATIENT
  Age: 10 Year
  Sex: Female

DRUGS (1)
  1. VALPROATE SODIUM [Suspect]
     Indication: EPILEPSY

REACTIONS (11)
  - PYREXIA [None]
  - DERMATITIS [None]
  - EOSINOPHILIA [None]
  - RASH GENERALISED [None]
  - LYMPHADENOPATHY [None]
  - OLIGURIA [None]
  - HEPATITIS [None]
  - SWELLING [None]
  - HEPATOSPLENOMEGALY [None]
  - DRUG RASH WITH EOSINOPHILIA AND SYSTEMIC SYMPTOMS [None]
  - ARTHRALGIA [None]
